FAERS Safety Report 23925467 (Version 1)
Quarter: 2024Q2

REPORT INFORMATION
  Report Type: Spontaneous
  Country: US (occurrence: US)
  Receive Date: 20240531
  Receipt Date: 20240531
  Transmission Date: 20240716
  Serious: Yes (Hospitalization, Other)
  Sender: FDA-Public Use
  Company Number: US-MTPC-MTPC2024-0011141

PATIENT
  Age: 78 Year
  Sex: Female

DRUGS (2)
  1. ARGATROBAN [Suspect]
     Active Substance: ARGATROBAN
     Indication: Pulmonary embolism
     Dosage: UNK
     Route: 041
  2. WARFARIN POTASSIUM [Concomitant]
     Active Substance: WARFARIN POTASSIUM
     Indication: Pulmonary embolism
     Dosage: UNK
     Route: 065

REACTIONS (4)
  - Deep vein thrombosis [Unknown]
  - Deep vein thrombosis [Recovering/Resolving]
  - Superficial vein thrombosis [Recovering/Resolving]
  - Off label use [Unknown]
